FAERS Safety Report 17611040 (Version 1)
Quarter: 2020Q2

REPORT INFORMATION
  Report Type: Spontaneous
  Country: US (occurrence: US)
  Receive Date: 20200401
  Receipt Date: 20200401
  Transmission Date: 20200713
  Serious: No
  Sender: FDA-Public Use
  Company Number: None

PATIENT
  Age: 69 Year
  Sex: Female
  Weight: 66.6 kg

DRUGS (13)
  1. AMLODIPINE 5 MG, ORAL [Concomitant]
  2. LEVOTHYROXINE 50 MCG, ORAL [Concomitant]
  3. INLYTA [Suspect]
     Active Substance: AXITINIB
     Indication: RENAL CANCER
     Route: 048
     Dates: start: 20191212, end: 20200401
  4. AMITIZA, 8 MCG, ORAL [Concomitant]
  5. MORPHINE SULFATE 15 MG, ORAL [Concomitant]
  6. MOVANTIK 12.5 MG, ORAL [Concomitant]
  7. INLYTA [Suspect]
     Active Substance: AXITINIB
     Indication: LUNG NEOPLASM MALIGNANT
     Route: 048
     Dates: start: 20191212, end: 20200401
  8. INLYTA [Suspect]
     Active Substance: AXITINIB
     Indication: BONE CANCER
     Route: 048
     Dates: start: 20191212, end: 20200401
  9. ACETAMINOPHEN 500 MG, ORAL [Concomitant]
  10. MS CONTIN, 15 MG, ORAL [Concomitant]
  11. VITAMIN C 500 MG, ORAL [Concomitant]
  12. VITAMIN D 50 MCG, ORAL [Concomitant]
  13. LEVOTHYROXINE 25 MCG, ORAL [Concomitant]

REACTIONS (1)
  - Death [None]

NARRATIVE: CASE EVENT DATE: 20200401
